FAERS Safety Report 9383518 (Version 3)
Quarter: 2013Q3

REPORT INFORMATION
  Report Type: Spontaneous
  Country: AU (occurrence: AU)
  Receive Date: 20130704
  Receipt Date: 20130814
  Transmission Date: 20140515
  Serious: Yes (Other)
  Sender: FDA-Public Use
  Company Number: AU-AMGEN-AUSSP2013046324

PATIENT
  Age: 68 Year
  Sex: Female

DRUGS (4)
  1. XGEVA [Suspect]
     Indication: METASTASES TO BONE
     Dosage: 120 MG, QMO
     Route: 058
     Dates: start: 20130102
  2. XGEVA [Suspect]
     Indication: BREAST CANCER METASTATIC
  3. ANASTROZOLE [Concomitant]
  4. HORMONES [Concomitant]

REACTIONS (3)
  - Carpal tunnel syndrome [Unknown]
  - Insomnia [Unknown]
  - Glossodynia [Recovered/Resolved]
